FAERS Safety Report 25183468 (Version 1)
Quarter: 2025Q2

REPORT INFORMATION
  Report Type: Spontaneous
  Country: US (occurrence: US)
  Receive Date: 20250410
  Receipt Date: 20250410
  Transmission Date: 20250716
  Serious: No
  Sender: AMGEN
  Company Number: US-AMGEN-USASP2025063354

PATIENT

DRUGS (2)
  1. SODIUM PHENYLBUTYRATE [Suspect]
     Active Substance: SODIUM PHENYLBUTYRATE
     Indication: Amyotrophic lateral sclerosis
     Route: 048
  2. URSODOXICOLTAURINE [Suspect]
     Active Substance: URSODOXICOLTAURINE
     Indication: Amyotrophic lateral sclerosis
     Route: 048

REACTIONS (1)
  - Gastrointestinal disorder [Unknown]
